FAERS Safety Report 17000067 (Version 1)
Quarter: 2019Q4

REPORT INFORMATION
  Report Type: Spontaneous
  Country: GB (occurrence: GB)
  Receive Date: 20191106
  Receipt Date: 20191106
  Transmission Date: 20200122
  Serious: Yes (Life-Threatening)
  Sender: FDA-Public Use
  Company Number: GB-COLGATE PALMOLIVE COMPANY-20191102758

PATIENT

DRUGS (10)
  1. CHLORHEXIDINE UNSPECIFIED [Suspect]
     Active Substance: CHLORHEXIDINE
     Dosage: 1 DOSAGE FORM
     Route: 061
     Dates: start: 20191018, end: 20191018
  2. AMLODIPINE [Concomitant]
     Active Substance: AMLODIPINE BESYLATE
  3. TEICOPLANIN [Suspect]
     Active Substance: TEICOPLANIN
     Indication: INFECTION PROPHYLAXIS
     Dosage: 400 MILLIGRAM
     Route: 042
     Dates: start: 20191018, end: 20191018
  4. PROPRANOLOL [Concomitant]
     Active Substance: PROPRANOLOL HYDROCHLORIDE
  5. CREON [Concomitant]
     Active Substance: PANCRELIPASE AMYLASE\PANCRELIPASE LIPASE\PANCRELIPASE PROTEASE
  6. IBUPROFEN. [Concomitant]
     Active Substance: IBUPROFEN
  7. GENTAMICIN. [Suspect]
     Active Substance: GENTAMICIN
     Indication: INFECTION PROPHYLAXIS
     Dosage: 320 MILLIGRAM
     Route: 042
     Dates: start: 20191018, end: 20191018
  8. SELENIUM [Concomitant]
     Active Substance: SELENIUM
  9. ALLIUM SATIVUM [Concomitant]
  10. COD-LIVER OIL [Concomitant]
     Active Substance: COD LIVER OIL

REACTIONS (1)
  - Anaphylactic reaction [Recovered/Resolved]

NARRATIVE: CASE EVENT DATE: 20191018
